FAERS Safety Report 4617615-8 (Version None)
Quarter: 2005Q1

REPORT INFORMATION
  Report Type: 
  Country: None (occurrence: None)
  Receive Date: 20050322
  Receipt Date: 20050309
  Transmission Date: 20050727
  Serious: Yes (Death, Hospitalization)
  Sender: FDA-Public Use
  Company Number: 2005-00480

PATIENT
  Age: 70 Year
  Sex: Male

DRUGS (13)
  1. VELCADE [Suspect]
     Indication: MULTIPLE MYELOMA
     Dosage: 1.30 MG/M2, INTRAVENOUS
     Route: 042
     Dates: start: 20041223, end: 20050307
  2. DECADRON [Concomitant]
  3. CORDARONE [Concomitant]
  4. LISINOPRIL [Concomitant]
  5. REGLAN [Concomitant]
  6. PHOSLO [Concomitant]
  7. ZANTAC [Concomitant]
  8. TOPROL-XL [Concomitant]
  9. TYLENOL (PARACETAMOL) TABLET [Concomitant]
  10. BENADRYL (SODIUM CITRATE, MENTHOL, DIPHENHYDRAMINE HYDROCHLORIDE, AMMO [Concomitant]
  11. PREDNISONE [Concomitant]
  12. KYTRIL [Concomitant]
  13. SODIUM CHLORIDE (SODIUM CHLORIDE) SOLUTION (EXCEPT SYRUP) [Concomitant]

REACTIONS (11)
  - ARRHYTHMIA [None]
  - ASTHENIA [None]
  - BLOOD CREATINE INCREASED [None]
  - BLOOD POTASSIUM INCREASED [None]
  - BLOOD UREA INCREASED [None]
  - CARDIAC DISORDER [None]
  - CONDUCTION DISORDER [None]
  - DIZZINESS [None]
  - FATIGUE [None]
  - HYPOTENSION [None]
  - PLATELET COUNT DECREASED [None]
